FAERS Safety Report 18393933 (Version 3)
Quarter: 2022Q2

REPORT INFORMATION
  Report Type: Spontaneous
  Country: US (occurrence: None)
  Receive Date: 20201016
  Receipt Date: 20220520
  Transmission Date: 20220720
  Serious: Yes (Hospitalization, Other)
  Sender: FDA-Public Use
  Company Number: 2020SF31219

PATIENT
  Age: 829 Month
  Sex: Male

DRUGS (66)
  1. NEXIUM [Suspect]
     Active Substance: ESOMEPRAZOLE MAGNESIUM
     Indication: Gastrooesophageal reflux disease
     Route: 048
     Dates: start: 1998, end: 2018
  2. NEXIUM [Suspect]
     Active Substance: ESOMEPRAZOLE MAGNESIUM
     Indication: Gastrooesophageal reflux disease
     Route: 048
     Dates: start: 200508, end: 200607
  3. PRILOSEC [Suspect]
     Active Substance: OMEPRAZOLE MAGNESIUM
     Indication: Gastrooesophageal reflux disease
     Route: 065
     Dates: start: 1998, end: 2018
  4. PRILOSEC [Suspect]
     Active Substance: OMEPRAZOLE MAGNESIUM
     Indication: Gastrooesophageal reflux disease
     Route: 048
     Dates: start: 199805, end: 199808
  5. PRILOSEC [Suspect]
     Active Substance: OMEPRAZOLE MAGNESIUM
     Indication: Gastrooesophageal reflux disease
     Dosage: GENERIC
     Route: 065
     Dates: start: 201204, end: 201205
  6. PRILOSEC [Suspect]
     Active Substance: OMEPRAZOLE MAGNESIUM
     Indication: Gastrooesophageal reflux disease
     Dosage: GENERIC
     Route: 065
     Dates: start: 201302, end: 201311
  7. PRILOSEC [Suspect]
     Active Substance: OMEPRAZOLE MAGNESIUM
     Indication: Gastrooesophageal reflux disease
     Dosage: GENERIC
     Route: 065
     Dates: start: 201410, end: 201507
  8. PRILOSEC [Suspect]
     Active Substance: OMEPRAZOLE MAGNESIUM
     Indication: Gastrooesophageal reflux disease
     Dosage: GENERIC
     Route: 065
     Dates: start: 201511, end: 201806
  9. PRILOSEC [Suspect]
     Active Substance: OMEPRAZOLE MAGNESIUM
     Indication: Gastrooesophageal reflux disease
     Dosage: GENERIC
     Route: 065
  10. PRILOSEC [Suspect]
     Active Substance: OMEPRAZOLE MAGNESIUM
     Indication: Gastrooesophageal reflux disease
     Dosage: GENERIC
     Route: 065
     Dates: start: 20110517
  11. PREVACID [Suspect]
     Active Substance: LANSOPRAZOLE
     Indication: Gastrooesophageal reflux disease
     Route: 065
     Dates: start: 1998, end: 2018
  12. PREVACID [Suspect]
     Active Substance: LANSOPRAZOLE
     Indication: Gastrooesophageal reflux disease
     Route: 065
     Dates: start: 199809, end: 199906
  13. PROTONIX [Suspect]
     Active Substance: PANTOPRAZOLE SODIUM
     Indication: Gastrooesophageal reflux disease
     Route: 065
     Dates: start: 1998, end: 2018
  14. PROTONIX [Suspect]
     Active Substance: PANTOPRAZOLE SODIUM
     Indication: Gastrooesophageal reflux disease
     Route: 065
     Dates: start: 200608, end: 200705
  15. METFORMIN [Concomitant]
     Active Substance: METFORMIN HYDROCHLORIDE
     Indication: Diabetes mellitus
     Dates: start: 200506, end: 200804
  16. AVANDIA [Concomitant]
     Active Substance: ROSIGLITAZONE MALEATE
     Indication: Diabetes mellitus
     Dates: start: 200506, end: 200604
  17. HYDROCHLOROTHIAZIDE [Concomitant]
     Active Substance: HYDROCHLOROTHIAZIDE
     Indication: Diuretic therapy
     Dates: start: 200604, end: 201304
  18. PREDNISONE [Concomitant]
     Active Substance: PREDNISONE
     Indication: Steroid therapy
     Dates: start: 200604
  19. GLIPIZIDE [Concomitant]
     Active Substance: GLIPIZIDE
     Indication: Diabetes mellitus
     Dates: start: 200604, end: 200804
  20. LEXAPRO [Concomitant]
     Active Substance: ESCITALOPRAM OXALATE
     Indication: Affective disorder
     Dates: start: 200605, end: 200707
  21. TRICOR [Concomitant]
     Active Substance: FENOFIBRATE
     Indication: Blood cholesterol abnormal
     Dates: start: 200605, end: 200708
  22. ATENOLOL [Concomitant]
     Active Substance: ATENOLOL
     Indication: Blood pressure abnormal
     Dates: start: 200608, end: 200804
  23. LISINOPRIL [Concomitant]
     Active Substance: LISINOPRIL
     Indication: Blood pressure abnormal
     Dates: start: 200701, end: 201607
  24. DIOVAN [Concomitant]
     Active Substance: VALSARTAN
     Indication: Blood pressure abnormal
     Dates: start: 200704, end: 200708
  25. PEPCID [Concomitant]
     Active Substance: FAMOTIDINE
     Dates: start: 20120101, end: 20141231
  26. ZANTAC [Concomitant]
     Active Substance: RANITIDINE HYDROCHLORIDE
     Dates: start: 20100101, end: 20121231
  27. GAVISCON [Concomitant]
     Active Substance: ALUMINUM HYDROXIDE\MAGNESIUM CARBONATE
     Dates: start: 20040101, end: 20100228
  28. TUMS [Concomitant]
     Active Substance: CALCIUM CARBONATE
     Dates: start: 20040101, end: 20100228
  29. ROLAIDS [Concomitant]
     Active Substance: CALCIUM CARBONATE\MAGNESIUM HYDROXIDE
     Dates: start: 20040101, end: 20100228
  30. NORVASC [Concomitant]
     Active Substance: AMLODIPINE BESYLATE
  31. COREG [Concomitant]
     Active Substance: CARVEDILOL
  32. LANTUS [Concomitant]
     Active Substance: INSULIN GLARGINE
  33. ZOLOFT [Concomitant]
     Active Substance: SERTRALINE HYDROCHLORIDE
  34. LOTENSIN [Concomitant]
     Active Substance: BENAZEPRIL HYDROCHLORIDE
  35. AMOXICILLIN [Concomitant]
     Active Substance: AMOXICILLIN
  36. CHLORPHENIRAMINE TANNATE\PHENYLEPHRINE TANNATE\PYRILAMINE TANNATE [Concomitant]
     Active Substance: CHLORPHENIRAMINE TANNATE\PHENYLEPHRINE TANNATE\PYRILAMINE TANNATE
  37. CIPRO [Concomitant]
     Active Substance: CIPROFLOXACIN HYDROCHLORIDE
  38. VIAGRA [Concomitant]
     Active Substance: SILDENAFIL CITRATE
  39. ACETAMINOPHEN\HYDROCODONE BITARTRATE [Concomitant]
     Active Substance: ACETAMINOPHEN\HYDROCODONE BITARTRATE
  40. CELEBREX [Concomitant]
     Active Substance: CELECOXIB
  41. MECLIZINE [Concomitant]
     Active Substance: MECLIZINE HYDROCHLORIDE
  42. SULINDAC [Concomitant]
     Active Substance: SULINDAC
  43. TIZANIDINE [Concomitant]
     Active Substance: TIZANIDINE
  44. MUPIROCIN [Concomitant]
     Active Substance: MUPIROCIN
  45. FELODIPINE [Concomitant]
     Active Substance: FELODIPINE
  46. VALTREX [Concomitant]
     Active Substance: VALACYCLOVIR HYDROCHLORIDE
  47. HUMULIN NOS [Concomitant]
     Active Substance: INSULIN HUMAN
  48. GEMFIBROZIL [Concomitant]
     Active Substance: GEMFIBROZIL
  49. TRILIPIX [Concomitant]
     Active Substance: FENOFIBRIC ACID
  50. AZITHROMYCIN [Concomitant]
     Active Substance: AZITHROMYCIN
  51. VITAMIN D [Concomitant]
     Active Substance: VITAMIN D NOS
  52. METHOCARBAMOL [Concomitant]
     Active Substance: METHOCARBAMOL
  53. SIMVASTATIN [Concomitant]
     Active Substance: SIMVASTATIN
  54. PATADAY [Concomitant]
     Active Substance: OLOPATADINE HYDROCHLORIDE
  55. TRAZODONE [Concomitant]
     Active Substance: TRAZODONE HYDROCHLORIDE
  56. GABAPENTIN [Concomitant]
     Active Substance: GABAPENTIN
  57. MELOXICAM [Concomitant]
     Active Substance: MELOXICAM
  58. DOXEPIN [Concomitant]
     Active Substance: DOXEPIN
  59. BACLOFEN [Concomitant]
     Active Substance: BACLOFEN
  60. BUPROPION [Concomitant]
     Active Substance: BUPROPION
  61. ZOLPIDEM [Concomitant]
     Active Substance: ZOLPIDEM TARTRATE
  62. BESIVANCE [Concomitant]
     Active Substance: BESIFLOXACIN
  63. PROAIR HFA [Concomitant]
     Active Substance: ALBUTEROL SULFATE
  64. CEPHALEXIN [Concomitant]
     Active Substance: CEPHALEXIN
  65. SEROQUEL [Concomitant]
     Active Substance: QUETIAPINE FUMARATE
  66. PREVNAR [Concomitant]
     Active Substance: PNEUMOCOCCAL 7-VALENT CONJUGATE VACCINE (DIPHTHERIA CRM197 PROTEIN)

REACTIONS (5)
  - Acute kidney injury [Unknown]
  - Chronic kidney disease [Not Recovered/Not Resolved]
  - Chronic kidney disease-mineral and bone disorder [Unknown]
  - Nephrogenic anaemia [Unknown]
  - Renal failure [Unknown]

NARRATIVE: CASE EVENT DATE: 20100501
